FAERS Safety Report 14210327 (Version 2)
Quarter: 2018Q1

REPORT INFORMATION
  Report Type: Spontaneous
  Country: US (occurrence: US)
  Receive Date: 20171121
  Receipt Date: 20180215
  Transmission Date: 20180508
  Serious: Yes (Death)
  Sender: FDA-Public Use
  Company Number: US-RADIUS HEALTH INC.-2017US000282

PATIENT
  Sex: Female
  Weight: 48.98 kg

DRUGS (1)
  1. TYMLOS [Suspect]
     Active Substance: ABALOPARATIDE
     Indication: OSTEOPOROSIS POSTMENOPAUSAL
     Dosage: 80 MCG DAILY
     Route: 058
     Dates: start: 20170926

REACTIONS (1)
  - Death [Fatal]
